FAERS Safety Report 9731405 (Version 1)
Quarter: 2013Q4

REPORT INFORMATION
  Report Type: Spontaneous
  Country: GB (occurrence: None)
  Receive Date: 20131203
  Receipt Date: 20131203
  Transmission Date: 20140711
  Serious: Yes (Other)
  Sender: FDA-Public Use
  Company Number: 7252147

PATIENT
  Sex: Male

DRUGS (1)
  1. LEVOTHYROXINE (LEVOTHYROXINE) (LEVOTHYROXINE SODIUM) [Suspect]
     Indication: HYPOTHYROIDISM
     Dosage: PRODUCT TAKEN BY MOTHER

REACTIONS (5)
  - Foetal growth restriction [None]
  - Foetal monitoring abnormal [None]
  - Foetal exposure during pregnancy [None]
  - Low birth weight baby [None]
  - Foetal hypokinesia [None]
